FAERS Safety Report 21806917 (Version 2)
Quarter: 2023Q1

REPORT INFORMATION
  Report Type: Report from Study
  Country: US (occurrence: US)
  Receive Date: 20230102
  Receipt Date: 20230105
  Transmission Date: 20230418
  Serious: Yes (Other)
  Sender: FDA-Public Use
  Company Number: US-ABBVIE-22K-163-4515200-00

PATIENT
  Age: 64 Year
  Sex: Male
  Weight: 73 kg

DRUGS (40)
  1. HUMIRA [Suspect]
     Active Substance: ADALIMUMAB
     Indication: Rheumatoid arthritis
     Route: 058
  2. LINZESS [Concomitant]
     Active Substance: LINACLOTIDE
     Indication: Product used for unknown indication
  3. ULTRAM [Concomitant]
     Active Substance: TRAMADOL HYDROCHLORIDE
     Indication: Pain
     Route: 048
  4. TYLENOL [Concomitant]
     Active Substance: ACETAMINOPHEN
     Indication: Pain
     Dosage: FREQUENCY TEXT: BY MOUTH EVERY 8 HOURS AS NEEDED
     Route: 048
  5. insulin syringe-needle U-100 [Concomitant]
     Indication: Product used for unknown indication
     Dosage: 0.3 ML 31 GAUGE X 5/16^
  6. DICLOFENAC SODIUM [Concomitant]
     Active Substance: DICLOFENAC SODIUM
     Indication: Product used for unknown indication
  7. DEXILANT [Concomitant]
     Active Substance: DEXLANSOPRAZOLE
     Indication: Product used for unknown indication
  8. NORVASC [Concomitant]
     Active Substance: AMLODIPINE BESYLATE
     Indication: Product used for unknown indication
     Route: 048
  9. APIDRA U-100 INSULIN [Concomitant]
     Indication: Product used for unknown indication
  10. COZAAR [Concomitant]
     Active Substance: LOSARTAN POTASSIUM
     Indication: Product used for unknown indication
  11. idocaine-diphenhyd-Almag- sim (MAGIC MOUTHWASH) [Concomitant]
     Indication: Product used for unknown indication
     Route: 048
  12. DRISDOL (VITAMIN D-2) [Concomitant]
     Indication: Product used for unknown indication
  13. DULERA [Concomitant]
     Active Substance: FORMOTEROL FUMARATE DIHYDRATE\MOMETASONE FUROATE
     Indication: Product used for unknown indication
  14. BENICAR [Concomitant]
     Active Substance: OLMESARTAN MEDOXOMIL
     Indication: Product used for unknown indication
     Route: 048
  15. CYMBALTA [Concomitant]
     Active Substance: DULOXETINE HYDROCHLORIDE
     Indication: Product used for unknown indication
     Dosage: FREQUENCY TEXT: DAILY
     Route: 048
  16. SINGULAIR [Concomitant]
     Active Substance: MONTELUKAST SODIUM
     Indication: Product used for unknown indication
  17. glucose blood [Concomitant]
     Indication: Product used for unknown indication
  18. RABEPRAZOLE SODIUM [Concomitant]
     Active Substance: RABEPRAZOLE SODIUM
     Indication: Product used for unknown indication
     Route: 048
  19. TOPAMAX [Concomitant]
     Active Substance: TOPIRAMATE
     Indication: Product used for unknown indication
     Dosage: TIME INTERVAL: 0.33333333 DAYS
     Route: 048
  20. MYRBETRIQ [Concomitant]
     Active Substance: MIRABEGRON
     Indication: Product used for unknown indication
  21. XYLOCAINE [Concomitant]
     Active Substance: LIDOCAINE HYDROCHLORIDE
     Indication: Product used for unknown indication
  22. LEVSIN/SL [Concomitant]
     Indication: Product used for unknown indication
  23. PROVENTIL [Concomitant]
     Active Substance: ALBUTEROL
     Indication: Product used for unknown indication
     Dosage: 2.5 MG /3 ML (0.083 %)
  24. PROVENTIL [Concomitant]
     Active Substance: ALBUTEROL
     Indication: Product used for unknown indication
     Dosage: 2.5 MG /3 ML (0.083 %)?FREQUENCY TEXT: BY NEBULIZATION EVERY 4 HOURS
  25. ATIVAN [Concomitant]
     Active Substance: LORAZEPAM
     Indication: Product used for unknown indication
  26. MEDROL DOSEPACK [Concomitant]
     Indication: Product used for unknown indication
  27. ZOFRAN-OPT [Concomitant]
     Indication: Nausea
     Dosage: FREQUENCY TEXT: BY MOUTH EVERY 8 (EIGHT) HOURS
  28. PEPCID [Concomitant]
     Active Substance: FAMOTIDINE
     Indication: Product used for unknown indication
  29. COLCRYS [Concomitant]
     Active Substance: COLCHICINE
     Indication: Product used for unknown indication
  30. CARAFATE [Concomitant]
     Active Substance: SUCRALFATE
     Indication: Product used for unknown indication
     Dosage: 100MG/ML
  31. CARAFATE [Concomitant]
     Active Substance: SUCRALFATE
     Indication: Product used for unknown indication
     Dosage: 100MG/ML
  32. ZANAFLEX [Concomitant]
     Active Substance: TIZANIDINE HYDROCHLORIDE
     Indication: Muscle spasms
     Route: 048
  33. DELTASONE [Concomitant]
     Active Substance: PREDNISONE
     Indication: Product used for unknown indication
     Dosage: FREQUENCY TEXT: DAILY
     Route: 048
  34. PROVENTIL HEA;VENTOLIN HFA;PROAIR HFA [Concomitant]
     Indication: Product used for unknown indication
     Dosage: 90 MCG/ACTUATION
  35. PROVENTIL HEA;VENTOLIN HFA;PROAIR HFA [Concomitant]
     Indication: Product used for unknown indication
     Dosage: 90 MCG/ACTUATION
  36. CHOLECALCIFEROL [Concomitant]
     Active Substance: CHOLECALCIFEROL
     Indication: Product used for unknown indication
     Dosage: 125 MCG/ML (5,000 UNIT/ML)
  37. CHOLECALCIFEROL [Concomitant]
     Active Substance: CHOLECALCIFEROL
     Indication: Product used for unknown indication
     Dosage: 125 MCG/ML (5,000 UNIT/ML)
  38. LIPITOR [Concomitant]
     Active Substance: ATORVASTATIN CALCIUM
     Indication: Product used for unknown indication
  39. COLACE [Concomitant]
     Active Substance: DOCUSATE SODIUM
     Indication: Product used for unknown indication
  40. ESTRACE [Concomitant]
     Active Substance: ESTRADIOL
     Indication: Product used for unknown indication

REACTIONS (58)
  - Cataract [Unknown]
  - Systemic lupus erythematosus [Unknown]
  - Pain [Not Recovered/Not Resolved]
  - Rheumatic disorder [Unknown]
  - Foot deformity [Unknown]
  - Hiatus hernia [Unknown]
  - Orthostatic hypotension [Unknown]
  - Pain in extremity [Unknown]
  - Myofascial pain syndrome [Unknown]
  - Pathological fracture [Unknown]
  - Chronic sinusitis [Unknown]
  - Overweight [Unknown]
  - Hyperhidrosis [Unknown]
  - Diplopia [Unknown]
  - Fatigue [Unknown]
  - Dizziness [Unknown]
  - Hypocalcaemia [Unknown]
  - Depression [Unknown]
  - Behcet^s syndrome [Unknown]
  - Cystitis interstitial [Unknown]
  - Joint dislocation [Unknown]
  - Obstructive sleep apnoea syndrome [Unknown]
  - Migraine with aura [Unknown]
  - Tendonitis [Unknown]
  - Foot deformity [Unknown]
  - Peripheral vascular disorder [Unknown]
  - Osteoporosis [Unknown]
  - Dependence [Unknown]
  - Procedural nausea [Unknown]
  - Rib fracture [Unknown]
  - Type 1 diabetes mellitus [Unknown]
  - Body mass index abnormal [Unknown]
  - Mastocytosis [Unknown]
  - Type 2 diabetes mellitus [Unknown]
  - Hepatic function abnormal [Unknown]
  - Hyperlipidaemia [Unknown]
  - Raynaud^s phenomenon [Unknown]
  - Cardiac stress test abnormal [Unknown]
  - Chest pain [Unknown]
  - Palpitations [Unknown]
  - Skin lesion [Unknown]
  - Headache [Unknown]
  - Magnetic resonance imaging head abnormal [Unknown]
  - Arthralgia [Unknown]
  - Anaemia [Unknown]
  - Spinal stenosis [Unknown]
  - Pain [Unknown]
  - Essential hypertension [Unknown]
  - Asthma [Unknown]
  - Eyelid ptosis [Unknown]
  - Procedural vomiting [Unknown]
  - Transient ischaemic attack [Unknown]
  - Vitamin D deficiency [Unknown]
  - Hyperparathyroidism secondary [Unknown]
  - Diarrhoea [Unknown]
  - Impaired gastric emptying [Unknown]
  - Hepatic steatosis [Unknown]
  - Diabetic autonomic neuropathy [Unknown]

NARRATIVE: CASE EVENT DATE: 20220801
